FAERS Safety Report 6074235-9 (Version None)
Quarter: 2009Q1

REPORT INFORMATION
  Report Type: 
  Country: None (occurrence: None)
  Receive Date: 20090211
  Receipt Date: 20090203
  Transmission Date: 20090719
  Serious: Yes (Other)
  Sender: FDA-Public Use
  Company Number: US-ASTRAZENECA-2008UW18297

PATIENT
  Age: 63 Year
  Sex: Male

DRUGS (2)
  1. SYMBICORT [Suspect]
     Indication: ASTHMA
     Route: 055
  2. UNSPECIFIED MEDICATION FOR HYPERTENSION [Concomitant]
     Indication: HYPERTENSION
     Route: 048

REACTIONS (1)
  - CATARACT [None]
